FAERS Safety Report 9052069 (Version 2)
Quarter: 2013Q1

REPORT INFORMATION
  Report Type: Spontaneous
  Country: BR (occurrence: BR)
  Receive Date: 20130206
  Receipt Date: 20130307
  Transmission Date: 20140127
  Serious: Yes (Other)
  Sender: FDA-Public Use
  Company Number: PHHY2013BR010228

PATIENT
  Age: 86 Year
  Sex: Female

DRUGS (5)
  1. VOLTAREN SR [Suspect]
     Indication: OSTEOPOROSIS
     Dosage: 75 MG DAILY
     Route: 048
  2. ZOMETA [Suspect]
     Dosage: APPROXIMATELY 6-7 YEAR AGO
  3. EXAL [Suspect]
     Dosage: 10 MG APPROXIMATELY 6-7 YEAR AGO
  4. DUSPATALIN [Concomitant]
     Indication: ABDOMINAL DISCOMFORT
     Dosage: 75 MG,DAILY MANY YEARS AGO
     Route: 048
  5. GINKGO BILOBA [Concomitant]
     Indication: LABYRINTHITIS
     Dosage: 1 DF, DAILY ORAL MANY YERAS AGO
     Route: 048

REACTIONS (2)
  - Breast cancer [Recovering/Resolving]
  - Gastritis [Recovered/Resolved]
